FAERS Safety Report 8766936 (Version 1)
Quarter: 2012Q4

REPORT INFORMATION
  Report Type: 
  Country: US (occurrence: US)
  Receive Date: 20120831
  Receipt Date: 20120831
  Transmission Date: 20130627
  Serious: Yes (Life-Threatening, Other)
  Sender: FDA-Public Use
  Company Number: US-BAYER-2012-089933

PATIENT
  Age: 25 Year
  Sex: Male

DRUGS (1)
  1. PARACETAMOL + DIPHENHYDRAMINE [Suspect]

REACTIONS (3)
  - Unresponsive to stimuli [Recovered/Resolved]
  - Blood lactic acid increased [None]
  - Transaminases increased [None]
